FAERS Safety Report 22131001 (Version 1)
Quarter: 2023Q1

REPORT INFORMATION
  Report Type: Spontaneous
  Country: US (occurrence: US)
  Receive Date: 20230323
  Receipt Date: 20230323
  Transmission Date: 20230417
  Serious: No
  Sender: FDA-Public Use
  Company Number: US-SA-SAC20230323000548

PATIENT
  Age: 76 Year
  Sex: Female
  Weight: 570 kg

DRUGS (2)
  1. SARCLISA [Suspect]
     Active Substance: ISATUXIMAB-IRFC
     Indication: Plasmacytoma
     Dosage: 500 MG, QOW (500MG/25ML)
     Route: 041
     Dates: start: 20210209
  2. SARCLISA [Suspect]
     Active Substance: ISATUXIMAB-IRFC
     Dosage: 100 MG, QOW (100MG/5ML)
     Route: 041

REACTIONS (1)
  - Weight increased [Unknown]

NARRATIVE: CASE EVENT DATE: 20230321
